FAERS Safety Report 6667767-3 (Version None)
Quarter: 2010Q1

REPORT INFORMATION
  Report Type: 
  Country: None (occurrence: None)
  Receive Date: 20100331
  Receipt Date: 20100318
  Transmission Date: 20100710
  Serious: Yes (Hospitalization)
  Sender: FDA-Public Use
  Company Number: 015164

PATIENT
  Sex: Male

DRUGS (4)
  1. PRIALT [Suspect]
     Indication: SPINAL CORD INJURY
     Dosage: 0.271 UG, ONCE/HOUR, INTRATHECAL, 0321 UG, ONCE/HOUR, INTRATHECAL 0.25 UG, ONCE/HOUR, INTRATHECAL
     Route: 037
     Dates: start: 20100104, end: 20100101
  2. PRIALT [Suspect]
     Indication: SPINAL CORD INJURY
     Dosage: 0.271 UG, ONCE/HOUR, INTRATHECAL, 0321 UG, ONCE/HOUR, INTRATHECAL 0.25 UG, ONCE/HOUR, INTRATHECAL
     Route: 037
     Dates: start: 20100115, end: 20100127
  3. PRIALT [Suspect]
     Indication: SPINAL CORD INJURY
     Dosage: 0.271 UG, ONCE/HOUR, INTRATHECAL, 0321 UG, ONCE/HOUR, INTRATHECAL 0.25 UG, ONCE/HOUR, INTRATHECAL
     Route: 037
     Dates: start: 20090901
  4. PRIALT [Suspect]
     Indication: SPINAL CORD INJURY
     Dosage: 0.271 UG, ONCE/HOUR, INTRATHECAL, 0321 UG, ONCE/HOUR, INTRATHECAL 0.25 UG, ONCE/HOUR, INTRATHECAL
     Route: 037
     Dates: start: 20100127

REACTIONS (4)
  - CONFUSIONAL STATE [None]
  - DIZZINESS [None]
  - INCOHERENT [None]
  - PROSTATITIS [None]
